FAERS Safety Report 9980399 (Version 1)
Quarter: 2014Q1

REPORT INFORMATION
  Report Type: Spontaneous
  Country: US (occurrence: None)
  Receive Date: 20140305
  Receipt Date: 20140305
  Transmission Date: 20141002
  Serious: Yes (Other)
  Sender: FDA-Public Use
  Company Number: None

PATIENT
  Age: 58 Year
  Sex: Male

DRUGS (4)
  1. VELCADE [Suspect]
     Indication: PLASMA CELL MYELOMA
     Dates: start: 201309
  2. PREDNISONE [Suspect]
     Indication: PLASMA CELL MYELOMA
     Dates: start: 201309
  3. REVLIMID [Concomitant]
  4. DEXAMETHASONE [Concomitant]

REACTIONS (4)
  - Neuropathy peripheral [None]
  - Fatigue [None]
  - Pneumonia [None]
  - Diarrhoea [None]
